FAERS Safety Report 10465579 (Version 6)
Quarter: 2014Q4

REPORT INFORMATION
  Report Type: Spontaneous
  Country: ES (occurrence: ES)
  Receive Date: 20140919
  Receipt Date: 20141121
  Transmission Date: 20150528
  Serious: Yes (Hospitalization)
  Sender: FDA-Public Use
  Company Number: ES-PFIZER INC-2014258187

PATIENT
  Age: 62 Year
  Sex: Male

DRUGS (2)
  1. CHAMPIX [Suspect]
     Active Substance: VARENICLINE TARTRATE
     Indication: SELF-MEDICATION
     Dosage: 0.5 MG, 1X/DAY
     Route: 048
     Dates: start: 20140808, end: 20140815
  2. PANTOPRAZOLE [Suspect]
     Active Substance: PANTOPRAZOLE SODIUM
     Dosage: UNK
     Route: 048
     Dates: start: 2009

REACTIONS (5)
  - Diarrhoea [Recovered/Resolved]
  - Intentional product misuse [Recovered/Resolved]
  - Vomiting [Unknown]
  - Prerenal failure [Recovered/Resolved]
  - Hypomagnesaemia [Unknown]

NARRATIVE: CASE EVENT DATE: 20140808
